FAERS Safety Report 4285313-9 (Version None)
Quarter: 2004Q1

REPORT INFORMATION
  Report Type: 
  Country: None (occurrence: None)
  Receive Date: 20040202
  Receipt Date: 20040119
  Transmission Date: 20041129
  Serious: Yes (Hospitalization)
  Sender: FDA-Public Use
  Company Number: FR-SHR-04-019511

PATIENT
  Age: 58 Year
  Sex: Male
  Weight: 73 kg

DRUGS (4)
  1. SOTALOL HCL [Suspect]
     Dosage: 160 MG/D, 1X/DAY, ORAL
     Route: 048
     Dates: start: 20001201, end: 20031024
  2. PREVISCAN (FLUINDIONE) [Concomitant]
  3. ACULIX (QUINAPRIL) [Concomitant]
  4. CHRONADALATE [Concomitant]

REACTIONS (13)
  - ANTINUCLEAR ANTIBODY POSITIVE [None]
  - CHILLS [None]
  - COLLAGEN-VASCULAR DISEASE [None]
  - HYPERGAMMAGLOBULINAEMIA [None]
  - PAIN IN EXTREMITY [None]
  - PLEURAL DISORDER [None]
  - PYREXIA [None]
  - RED BLOOD CELL SEDIMENTATION RATE INCREASED [None]
  - RENAL CYST [None]
  - RHEUMATOID FACTOR POSITIVE [None]
  - SJOGREN'S SYNDROME [None]
  - SYSTEMIC LUPUS ERYTHEMATOSUS [None]
  - WEIGHT DECREASED [None]
